FAERS Safety Report 8308431-4 (Version None)
Quarter: 2012Q2

REPORT INFORMATION
  Report Type: 
  Country: None (occurrence: None)
  Receive Date: 20120424
  Receipt Date: 20120416
  Transmission Date: 20120825
  Serious: Yes (Other)
  Sender: FDA-Public Use
  Company Number: IT-ABBOTT-12P-083-0925990-00

PATIENT
  Sex: Male

DRUGS (1)
  1. HUMIRA [Suspect]
     Indication: CROHN'S DISEASE
     Dosage: CYCLIC
     Route: 030
     Dates: start: 20081107, end: 20110901

REACTIONS (3)
  - COLONOSCOPY ABNORMAL [None]
  - BANKRUPTCY [None]
  - DRUG INEFFECTIVE [None]
